FAERS Safety Report 15985657 (Version 1)
Quarter: 2019Q1

REPORT INFORMATION
  Report Type: Spontaneous
  Country: GB (occurrence: GB)
  Receive Date: 20190220
  Receipt Date: 20190220
  Transmission Date: 20190418
  Serious: Yes (Other)
  Sender: FDA-Public Use
  Company Number: GB-HQ SPECIALTY-GB-2019INT000049

PATIENT

DRUGS (5)
  1. VINORELBINE [Suspect]
     Active Substance: VINORELBINE\VINORELBINE TARTRATE
     Dosage: 25 MG/M2, DAY 1 AND 8 PLANNED
     Route: 042
  2. RADIATION [Suspect]
     Active Substance: RADIATION THERAPY
     Indication: NON-SMALL CELL LUNG CANCER
     Dosage: 55 GY IN 20 DAILY IN 20 DAILY FRACTIONS (2.75 GY PER FRACTION OVER 4 WEEKS)
     Route: 065
  3. CISPLATIN. [Suspect]
     Active Substance: CISPLATIN
     Dosage: 80 MG/M2, DAY 1 PLANNED
     Route: 042
  4. CISPLATIN. [Suspect]
     Active Substance: CISPLATIN
     Indication: NON-SMALL CELL LUNG CANCER
     Dosage: 20 MG/M2, (WITH FRACTIONS 1-4 AND 16-19)
     Route: 042
  5. VINORELBINE [Suspect]
     Active Substance: VINORELBINE\VINORELBINE TARTRATE
     Indication: NON-SMALL CELL LUNG CANCER
     Dosage: 15 MG/M2, (WITH FRACTIONS 1,6 AND 15 AND 20)
     Route: 042

REACTIONS (1)
  - Rectal haemorrhage [Unknown]
